FAERS Safety Report 25301257 (Version 1)
Quarter: 2025Q2

REPORT INFORMATION
  Report Type: Spontaneous
  Country: US (occurrence: None)
  Receive Date: 20250512
  Receipt Date: 20250512
  Transmission Date: 20250716
  Serious: Yes (Hospitalization)
  Sender: FDA-CTU
  Company Number: None

PATIENT
  Sex: Female

DRUGS (11)
  1. MEKINIST [Suspect]
     Active Substance: TRAMETINIB DIMETHYL SULFOXIDE
     Indication: Malignant melanoma
     Route: 048
  2. ADVAIR DISKU AER [Concomitant]
  3. ALBUTEROL [Concomitant]
     Active Substance: ALBUTEROL
  4. AMLODIPINE [Concomitant]
     Active Substance: AMLODIPINE BESYLATE
  5. ASPIRIN [Concomitant]
     Active Substance: ASPIRIN
  6. CELEXA [Concomitant]
     Active Substance: CITALOPRAM HYDROBROMIDE
  7. CLOTRIM/BETA CRE DIPROP [Concomitant]
  8. DEXCOM G7 MIS SENSOR [Concomitant]
  9. DIAZEPAM [Concomitant]
     Active Substance: DIAZEPAM
  10. FENOFIBRATE [Concomitant]
     Active Substance: FENOFIBRATE
  11. FERROUS SULFATE [Concomitant]
     Active Substance: FERROUS SULFATE

REACTIONS (4)
  - Fatigue [None]
  - Decreased appetite [None]
  - Malaise [None]
  - Confusional state [None]
